FAERS Safety Report 6111541-3 (Version None)
Quarter: 2009Q1

REPORT INFORMATION
  Report Type: 
  Country: None (occurrence: None)
  Receive Date: 20090310
  Receipt Date: 20090310
  Transmission Date: 20090719
  Serious: Yes (Other)
  Sender: FDA-Public Use
  Company Number: None

PATIENT
  Age: 47 Year
  Sex: Female
  Weight: 68.0396 kg

DRUGS (1)
  1. VYVANSE [Suspect]
     Indication: ATTENTION DEFICIT/HYPERACTIVITY DISORDER
     Dates: start: 20070701, end: 20090208

REACTIONS (1)
  - RASH GENERALISED [None]
